FAERS Safety Report 6666154-1 (Version None)
Quarter: 2010Q2

REPORT INFORMATION
  Report Type: 
  Country: None (occurrence: None)
  Receive Date: 20100402
  Receipt Date: 20100330
  Transmission Date: 20101027
  Serious: Yes (Hospitalization)
  Sender: FDA-Public Use
  Company Number: US-MERCK-1003USA03071

PATIENT
  Sex: Male

DRUGS (2)
  1. ZOCOR [Suspect]
     Indication: BLOOD CHOLESTEROL
     Route: 048
     Dates: start: 19960101, end: 19960101
  2. SIMVASTATIN [Suspect]
     Route: 065

REACTIONS (7)
  - BLADDER CANCER [None]
  - BREAST ENLARGEMENT [None]
  - BREAST TENDERNESS [None]
  - GYNAECOMASTIA [None]
  - KIDNEY INFECTION [None]
  - OBSTRUCTION [None]
  - RENAL DISORDER [None]
